FAERS Safety Report 8199627-3 (Version None)
Quarter: 2012Q1

REPORT INFORMATION
  Report Type: 
  Country: None (occurrence: None)
  Receive Date: 20120311
  Receipt Date: 20120307
  Transmission Date: 20120608
  Serious: No
  Sender: FDA-Public Use
  Company Number: US-PFIZER INC-2012061500

PATIENT
  Sex: Male

DRUGS (4)
  1. BENICAR [Concomitant]
     Indication: HYPERTENSION
     Dosage: UNK
  2. VIAGRA [Suspect]
     Indication: ERECTILE DYSFUNCTION
     Dosage: 100 MG, AS NEEDED
     Route: 048
  3. LUNESTA [Concomitant]
     Indication: SLEEP DISORDER
     Dosage: UNK
  4. LATANOPROST [Concomitant]
     Indication: GLAUCOMA
     Dosage: UNK

REACTIONS (1)
  - DRUG INEFFECTIVE [None]
